FAERS Safety Report 7760522-2 (Version None)
Quarter: 2011Q3

REPORT INFORMATION
  Report Type: 
  Country: None (occurrence: None)
  Receive Date: 20110919
  Receipt Date: 20110801
  Transmission Date: 20111222
  Serious: No
  Sender: FDA-Public Use
  Company Number: US-MUTUAL PHARMACEUTICAL COMPANY, INC.-TMZP20110002

PATIENT
  Sex: Female
  Weight: 65.83 kg

DRUGS (3)
  1. ZOCOR [Concomitant]
     Indication: DRUG THERAPY
     Route: 048
  2. TEMAZEPAM [Suspect]
     Indication: INSOMNIA
     Route: 048
     Dates: start: 20110325, end: 20110325
  3. TEMAZEPAM [Suspect]

REACTIONS (1)
  - DRUG INEFFECTIVE [None]
